FAERS Safety Report 18156177 (Version 1)
Quarter: 2020Q3

REPORT INFORMATION
  Report Type: Spontaneous
  Country: US (occurrence: US)
  Receive Date: 20200814
  Receipt Date: 20200814
  Transmission Date: 20201103
  Serious: Yes (Life-Threatening)
  Sender: FDA-Public Use
  Company Number: None

PATIENT

DRUGS (1)
  1. HAND SANITIZER NOS [Suspect]
     Active Substance: ALCOHOL\AVOBENZONE\HOMOSALATE\OCTISALATE\OCTOCRYLENE\OXYBENZONE OR ALCOHOL\HOMOSALATE\OCTINOXATE\OCTISALATE\OXYBENZONE OR ALCOHOL\NAPHAZOLINE HYDROCHLORIDE\POLYETHYLENE GLYCOL 300 OR CITRIC ACID MONOHYDRATE\COCAMIDOPROPYL BETAINE OR ISOPROPYL ALCOHOL
     Indication: COVID-19 PROPHYLAXIS

REACTIONS (1)
  - Peripheral swelling [None]

NARRATIVE: CASE EVENT DATE: 20200807
